FAERS Safety Report 25714006 (Version 5)
Quarter: 2025Q4

REPORT INFORMATION
  Report Type: Report from Study
  Country: US (occurrence: US)
  Receive Date: 20250822
  Receipt Date: 20251224
  Transmission Date: 20260118
  Serious: Yes (Other)
  Sender: ABBVIE
  Company Number: US-ABBVIE-6370634

PATIENT
  Age: 84 Year
  Sex: Female

DRUGS (5)
  1. CREON [Suspect]
     Active Substance: PANCRELIPASE AMYLASE\PANCRELIPASE LIPASE\PANCRELIPASE PROTEASE
     Indication: Pancreatic failure
     Dosage: LAST ADMIN DATE: 2025
     Route: 048
     Dates: start: 20250710
  2. CREON [Suspect]
     Active Substance: PANCRELIPASE AMYLASE\PANCRELIPASE LIPASE\PANCRELIPASE PROTEASE
     Indication: Pancreatic failure
     Dosage: LAST ADMIN 2025
     Route: 048
     Dates: start: 20250714
  3. CREON [Suspect]
     Active Substance: PANCRELIPASE AMYLASE\PANCRELIPASE LIPASE\PANCRELIPASE PROTEASE
     Indication: Pancreatic failure
     Dosage: LAST ADMIN DATE: 2025
     Route: 048
     Dates: start: 20250708
  4. CREON [Suspect]
     Active Substance: PANCRELIPASE AMYLASE\PANCRELIPASE LIPASE\PANCRELIPASE PROTEASE
     Indication: Pancreatic failure
     Route: 048
     Dates: start: 20251001
  5. CREON [Suspect]
     Active Substance: PANCRELIPASE AMYLASE\PANCRELIPASE LIPASE\PANCRELIPASE PROTEASE
     Indication: Pancreatic failure
     Dosage: LAST ADMIN DATE: 2025
     Route: 048
     Dates: start: 20250708

REACTIONS (7)
  - Brain neoplasm [Recovering/Resolving]
  - Abdominal distension [Not Recovered/Not Resolved]
  - Diarrhoea [Not Recovered/Not Resolved]
  - Incorrect dose administered [Unknown]
  - Irritable bowel syndrome [Unknown]
  - Drug ineffective [Unknown]
  - Flatulence [Unknown]

NARRATIVE: CASE EVENT DATE: 20250101
